FAERS Safety Report 14653481 (Version 3)
Quarter: 2018Q1

REPORT INFORMATION
  Report Type: Spontaneous
  Country: JP (occurrence: JP)
  Receive Date: 20180319
  Receipt Date: 20180330
  Transmission Date: 20180509
  Serious: Yes (Death, Other)
  Sender: FDA-Public Use
  Company Number: JP-ASTELLAS-2018JP004973

PATIENT
  Age: 86 Year
  Sex: Male

DRUGS (4)
  1. BETANIS [Suspect]
     Active Substance: MIRABEGRON
     Indication: HYPERTONIC BLADDER
     Route: 048
     Dates: start: 20180213, end: 20180313
  2. CRAVIT [Concomitant]
     Active Substance: LEVOFLOXACIN
     Indication: ESCHERICHIA URINARY TRACT INFECTION
     Route: 048
     Dates: start: 20180213, end: 20180213
  3. CRAVIT [Concomitant]
     Active Substance: LEVOFLOXACIN
     Route: 048
     Dates: start: 20180214, end: 20180219
  4. TAMSULOSIN                         /01280302/ [Concomitant]
     Active Substance: TAMSULOSIN HYDROCHLORIDE
     Indication: BENIGN PROSTATIC HYPERPLASIA
     Dosage: 0.2 MG, ONCE DAILY
     Route: 048
     Dates: start: 20180213, end: 20180313

REACTIONS (1)
  - Myocardial infarction [Fatal]

NARRATIVE: CASE EVENT DATE: 20180313
